FAERS Safety Report 22617850 (Version 1)
Quarter: 2023Q2

REPORT INFORMATION
  Report Type: Spontaneous
  Country: US (occurrence: US)
  Receive Date: 20230620
  Receipt Date: 20230620
  Transmission Date: 20230722
  Serious: No
  Sender: FDA-Public Use
  Company Number: US-ELI_LILLY_AND_COMPANY-US202306010494

PATIENT
  Sex: Female

DRUGS (2)
  1. RETEVMO [Suspect]
     Active Substance: SELPERCATINIB
     Indication: Non-small cell lung cancer
     Dosage: 160 MG, BID
     Route: 048
  2. RETEVMO [Suspect]
     Active Substance: SELPERCATINIB
     Dosage: 120 MG, BID
     Route: 048

REACTIONS (1)
  - Oedema [Recovering/Resolving]
